FAERS Safety Report 7371987-2 (Version None)
Quarter: 2011Q1

REPORT INFORMATION
  Report Type: 
  Country: None (occurrence: None)
  Receive Date: 20110322
  Receipt Date: 20110322
  Transmission Date: 20110831
  Serious: Yes (Hospitalization)
  Sender: FDA-Public Use
  Company Number: None

PATIENT
  Sex: Female
  Weight: 81.4 kg

DRUGS (1)
  1. ERBITUX [Suspect]
     Dosage: 0 MG

REACTIONS (1)
  - FEBRILE NEUTROPENIA [None]
